FAERS Safety Report 8763625 (Version 1)
Quarter: 2012Q4

REPORT INFORMATION
  Report Type: 
  Country: US (occurrence: None)
  Receive Date: 20120828
  Receipt Date: 20120828
  Transmission Date: 20130627
  Serious: Yes (Hospitalization, Other)
  Sender: FDA-Public Use
  Company Number: 2012MA010133

PATIENT
  Age: 26 Year
  Sex: Female

DRUGS (1)
  1. FEVERALL [Suspect]
     Indication: ANKYLOSING SPONDYLITIS

REACTIONS (16)
  - Acute hepatic failure [None]
  - Overdose [None]
  - Blood glucose decreased [None]
  - General physical health deterioration [None]
  - Encephalopathy [None]
  - Coagulopathy [None]
  - International normalised ratio increased [None]
  - Liver transplant [None]
  - Hepatic necrosis [None]
  - Cholestasis [None]
  - Diabetes insipidus [None]
  - Transplant rejection [None]
  - Neurological decompensation [None]
  - Liver transplant rejection [None]
  - Brain injury [None]
  - Surgical procedure repeated [None]
